FAERS Safety Report 7345366-8 (Version None)
Quarter: 2011Q1

REPORT INFORMATION
  Report Type: 
  Country: None (occurrence: None)
  Receive Date: 20110310
  Receipt Date: 20110223
  Transmission Date: 20110831
  Serious: Yes (Other)
  Sender: FDA-Public Use
  Company Number: PHHY2010US85943

PATIENT
  Sex: Female

DRUGS (1)
  1. GLEEVEC [Suspect]
     Indication: SCLERODERMA
     Dosage: 100 MG, QD
     Route: 048

REACTIONS (3)
  - MELAENA [None]
  - GASTRIC HAEMORRHAGE [None]
  - GASTRIC ANTRAL VASCULAR ECTASIA [None]
